FAERS Safety Report 8293276-4 (Version None)
Quarter: 2012Q2

REPORT INFORMATION
  Report Type: 
  Country: None (occurrence: None)
  Receive Date: 20120417
  Receipt Date: 20110413
  Transmission Date: 20120825
  Serious: No
  Sender: FDA-Public Use
  Company Number: US-ASTRAZENECA-2011SE08321

PATIENT
  Age: 54 Year
  Sex: Female

DRUGS (3)
  1. CALCIUM CARBONATE [Concomitant]
  2. NEXIUM [Suspect]
     Route: 048
  3. PRILOSEC [Suspect]
     Route: 048

REACTIONS (10)
  - SLEEP DISORDER DUE TO A GENERAL MEDICAL CONDITION [None]
  - DYSPNOEA [None]
  - DRUG DOSE OMISSION [None]
  - MEMORY IMPAIRMENT [None]
  - GASTROOESOPHAGEAL REFLUX DISEASE [None]
  - THROAT IRRITATION [None]
  - FIBROMYALGIA [None]
  - MALAISE [None]
  - NEUROPATHY PERIPHERAL [None]
  - INSOMNIA [None]
